FAERS Safety Report 10462600 (Version 2)
Quarter: 2014Q4

REPORT INFORMATION
  Report Type: Spontaneous
  Country: US (occurrence: US)
  Receive Date: 20140918
  Receipt Date: 20141003
  Transmission Date: 20150528
  Serious: Yes (Death, Other)
  Sender: FDA-Public Use
  Company Number: US-BAYER-2014-138412

PATIENT
  Age: 84 Year
  Sex: Male

DRUGS (1)
  1. ALEVE [Suspect]
     Active Substance: NAPROXEN SODIUM
     Indication: ARTHRITIS
     Dosage: UNK, QD
     Route: 048

REACTIONS (8)
  - Fall [Unknown]
  - Eye injury [None]
  - Gastric cancer [Fatal]
  - Incorrect drug administration duration [Unknown]
  - Blood count abnormal [Unknown]
  - Asthenia [Unknown]
  - Chromaturia [Unknown]
  - Feeding disorder [Unknown]
